FAERS Safety Report 9646948 (Version 1)
Quarter: 2013Q4

REPORT INFORMATION
  Report Type: Spontaneous
  Country: US (occurrence: US)
  Receive Date: 20131027
  Receipt Date: 20131027
  Transmission Date: 20140711
  Serious: No
  Sender: FDA-Public Use
  Company Number: US-PURDUE-USA-2013-0102096

PATIENT
  Sex: Male

DRUGS (5)
  1. OXYCONTIN (NDA 22-272) [Suspect]
     Indication: SPINAL COLUMN STENOSIS
     Dosage: 40 MG, BID
     Route: 048
     Dates: start: 201205
  2. DIOVAN HCT [Concomitant]
     Indication: BLOOD PRESSURE
     Dosage: 1 (12.5/80 MG) TABLET, DAILY
     Route: 048
  3. WELCHOL [Concomitant]
     Indication: BLOOD CHOLESTEROL
     Dosage: 625 MG, BID
     Route: 048
  4. SPIRIVA [Concomitant]
     Indication: CHRONIC OBSTRUCTIVE PULMONARY DISEASE
     Dosage: 1 PUFF, DAILY
     Route: 055
  5. STOOL SOFTENER [Concomitant]
     Indication: FAECES HARD
     Dosage: UNK, 2/WEEK
     Route: 048

REACTIONS (1)
  - Abnormal faeces [Not Recovered/Not Resolved]
